FAERS Safety Report 4352602-9 (Version None)
Quarter: 2004Q2

REPORT INFORMATION
  Report Type: 
  Country: None (occurrence: None)
  Receive Date: 20040503
  Receipt Date: 20040503
  Transmission Date: 20050107
  Serious: Yes (Hospitalization)
  Sender: FDA-Public Use
  Company Number: None

PATIENT
  Age: 52 Year
  Sex: Female
  Weight: 77.1115 kg

DRUGS (2)
  1. LEVAQUIN [Suspect]
     Indication: URINARY TRACT INFECTION
     Dosage: ONE DAY ORAL
     Route: 048
     Dates: start: 20040207, end: 20040214
  2. CIPRO [Suspect]
     Indication: URINARY TRACT INFECTION
     Dosage: ONE DAY ORAL
     Route: 048
     Dates: start: 20040120, end: 20040127

REACTIONS (5)
  - ANXIETY [None]
  - ARTHRALGIA [None]
  - DEPERSONALISATION [None]
  - HYPOAESTHESIA [None]
  - PARAESTHESIA [None]
